FAERS Safety Report 4827740-4 (Version None)
Quarter: 2005Q4

REPORT INFORMATION
  Report Type: 
  Country: None (occurrence: None)
  Receive Date: 20051110
  Receipt Date: 20051027
  Transmission Date: 20060501
  Serious: Yes (Death, Hospitalization, Other)
  Sender: FDA-Public Use
  Company Number: USA-2005-0021703

PATIENT
  Age: 41 Year
  Sex: Male

DRUGS (11)
  1. OXYCONTIN [Suspect]
     Indication: BACK PAIN
     Dosage: 80 MG, TID
  2. OXYMORPHONE HYDROCHLORIDE [Suspect]
  3. HYDROMORPHONE HCL [Suspect]
  4. HYDROCODONE BITARTRATE [Suspect]
  5. BUTALBITAL [Suspect]
  6. ETHANOL       (ETHANOL) [Suspect]
  7. ACETAMINOPHEN AND HYDROCODONE BITARTRATE [Concomitant]
  8. DURAGESIC-100 [Concomitant]
  9. DIAZEPAM [Suspect]
     Indication: DRUG USE FOR UNKNOWN INDICATION
  10. AMITRIPTYLINE HCL [Suspect]
     Indication: DRUG USE FOR UNKNOWN INDICATION
  11. NORTRIPTYLINE HCL [Suspect]
     Indication: DRUG USE FOR UNKNOWN INDICATION

REACTIONS (4)
  - DRUG TOXICITY [None]
  - FALL [None]
  - NERVE INJURY [None]
  - SEDATION [None]
